FAERS Safety Report 5608410-1 (Version None)
Quarter: 2008Q1

REPORT INFORMATION
  Report Type: 
  Country: None (occurrence: None)
  Receive Date: 20080125
  Receipt Date: 20080110
  Transmission Date: 20080703
  Serious: Yes (Death, Hospitalization)
  Sender: FDA-Public Use
  Company Number: FR-JNJFOC-20080102500

PATIENT
  Age: 72 Year
  Sex: Female

DRUGS (15)
  1. DECITABINE (DECITABINE) LYOPHILIZED POWDER [Suspect]
     Indication: ACUTE MYELOID LEUKAEMIA
     Dosage: 20 MG/N2, 5 IN 1 CYCLICAL; INTRAVENOUS
     Route: 042
     Dates: start: 20070910, end: 20071207
  2. TRIAMTERENE HYDROCHLOROTHIAZIDE (TRIAMTERENE) [Concomitant]
  3. OMEPRAZOLE [Concomitant]
  4. ZOPICLONE (ZOPICLONE) CAPSULE [Concomitant]
  5. VALACYCLOVIR [Concomitant]
  6. CEFTRIAXONE [Concomitant]
  7. FENTANYL [Concomitant]
  8. 0111111 [Concomitant]
  9. DEXTROPROPOXYPHENE (DEXTROPROPOXYPHENE) [Concomitant]
  10. ALLOPURINOL [Concomitant]
  11. TAZOCILLINE (PIP/TAZO) [Concomitant]
  12. CIPROFLOXACINE (CIPROFLOXACIN) [Concomitant]
  13. AMIKACIN [Concomitant]
  14. CLAVULANIC ACID (CLAVULANIC ACID) [Concomitant]
  15. PRISTINAMYCINE (PRISTINAMYCIN) [Concomitant]

REACTIONS (9)
  - ABSCESS [None]
  - ARTHRITIS [None]
  - ASTHENIA [None]
  - GENERAL PHYSICAL HEALTH DETERIORATION [None]
  - INFECTION [None]
  - PAIN [None]
  - PANCYTOPENIA [None]
  - RASH [None]
  - TONSILLAR ULCER [None]
